FAERS Safety Report 6809657-9 (Version None)
Quarter: 2010Q2

REPORT INFORMATION
  Report Type: 
  Country: None (occurrence: None)
  Receive Date: 20100630
  Receipt Date: 20100621
  Transmission Date: 20101027
  Serious: Yes (Other)
  Sender: FDA-Public Use
  Company Number: BR-PFIZER INC-2010077167

PATIENT
  Age: 49 Year
  Sex: Male
  Weight: 90 kg

DRUGS (1)
  1. LYRICA [Suspect]
     Indication: ANXIETY DISORDER
     Dosage: 1250 MG DAILY
     Route: 048
     Dates: start: 20100601

REACTIONS (4)
  - ALCOHOL POISONING [None]
  - HEADACHE [None]
  - INCREASED APPETITE [None]
  - NECK PAIN [None]
